FAERS Safety Report 4673396-3 (Version None)
Quarter: 2005Q2

REPORT INFORMATION
  Report Type: 
  Country: None (occurrence: None)
  Receive Date: 20050523
  Receipt Date: 20050509
  Transmission Date: 20051028
  Serious: Yes (Other)
  Sender: FDA-Public Use
  Company Number: 2005074742

PATIENT
  Age: 9 Year
  Sex: 0

DRUGS (1)
  1. SOLU-MEDROL [Suspect]
     Indication: ILL-DEFINED DISORDER
     Dosage: 40 MG (1 IN 1 D)
     Dates: start: 20050509

REACTIONS (4)
  - HYPERSENSITIVITY [None]
  - LACTOSE INTOLERANCE [None]
  - STRIDOR [None]
  - URTICARIA [None]
